FAERS Safety Report 25476650 (Version 1)
Quarter: 2025Q2

REPORT INFORMATION
  Report Type: Other
  Country: CN (occurrence: CN)
  Receive Date: 20250625
  Receipt Date: 20250625
  Transmission Date: 20250716
  Serious: Yes (Hospitalization, Other)
  Sender: DEXCEL LTD.
  Company Number: CN-DEXPHARM-2025-3538

PATIENT
  Age: 54 Year
  Sex: Male

DRUGS (4)
  1. TOFACITINIB [Suspect]
     Active Substance: TOFACITINIB
     Dates: start: 2018
  2. METHYLPREDNISOLONE [Concomitant]
     Active Substance: METHYLPREDNISOLONE
     Indication: Demyelination
     Dosage: 500 MG DAILY FOR 3 DAYS
  3. METHYLPREDNISOLONE [Concomitant]
     Active Substance: METHYLPREDNISOLONE
     Indication: Demyelination
     Dates: start: 2022
  4. DUPILUMAB [Concomitant]
     Active Substance: DUPILUMAB
     Indication: Demyelination
     Dates: start: 2022

REACTIONS (2)
  - Demyelination [Unknown]
  - Pemphigoid [Recovered/Resolved]
